FAERS Safety Report 8934356 (Version 1)
Quarter: 2012Q4

REPORT INFORMATION
  Report Type: Report from Study
  Country: ES (occurrence: ES)
  Receive Date: 20121129
  Receipt Date: 20121129
  Transmission Date: 20130627
  Serious: Yes (Death, Hospitalization, Other)
  Sender: FDA-Public Use
  Company Number: ES-ROCHE-1157195

PATIENT
  Age: 62 Year
  Sex: Male

DRUGS (3)
  1. MYCOPHENOLATE MOFETIL [Suspect]
     Indication: PRODUCT USED FOR UNKNOWN INDICATION
     Route: 065
  2. VALGANCICLOVIR [Suspect]
     Indication: PRODUCT USED FOR UNKNOWN INDICATION
     Route: 065
  3. TACROLIMUS [Suspect]
     Indication: PRODUCT USED FOR UNKNOWN INDICATION
     Route: 065

REACTIONS (14)
  - Death [Fatal]
  - Diarrhoea [Recovering/Resolving]
  - Leukopenia [Unknown]
  - Sepsis [Unknown]
  - Cardiac failure [Unknown]
  - Anaemia [Unknown]
  - Pneumonia [Unknown]
  - Renal impairment [Unknown]
  - Neutropenia [Unknown]
  - Ischaemic hepatitis [Unknown]
  - Enterocolitis infectious [Unknown]
  - Oedema peripheral [Unknown]
  - Hypoproteinaemia [Unknown]
  - Cytomegalovirus viraemia [Unknown]
